FAERS Safety Report 12731571 (Version 1)
Quarter: 2016Q3

REPORT INFORMATION
  Report Type: Spontaneous
  Country: FR (occurrence: FR)
  Receive Date: 20160912
  Receipt Date: 20160912
  Transmission Date: 20161109
  Serious: Yes (Other)
  Sender: FDA-Public Use
  Company Number: FR-BAYER-2016-170129

PATIENT
  Age: 57 Year
  Sex: Male

DRUGS (1)
  1. SORAFENIB (RAF KINASE INHIBITOR) [Suspect]
     Active Substance: SORAFENIB
     Indication: CHORDOMA
     Dosage: 800 MG, QD
     Dates: start: 2011

REACTIONS (2)
  - Hyperthyroidism [None]
  - Basedow^s disease [None]
